FAERS Safety Report 21867373 (Version 1)
Quarter: 2023Q1

REPORT INFORMATION
  Report Type: Report from Study
  Country: US (occurrence: US)
  Receive Date: 20230116
  Receipt Date: 20230116
  Transmission Date: 20230417
  Serious: No
  Sender: FDA-Public Use
  Company Number: US-ABBVIE-4238066

PATIENT
  Sex: Male

DRUGS (1)
  1. HUMIRA [Suspect]
     Active Substance: ADALIMUMAB
     Indication: Rheumatoid arthritis
     Route: 058
     Dates: start: 20210201

REACTIONS (6)
  - Musculoskeletal stiffness [Unknown]
  - Chest pain [Unknown]
  - Back pain [Unknown]
  - Pericarditis [Unknown]
  - Neck pain [Unknown]
  - Dyspnoea [Unknown]
